FAERS Safety Report 6144571-6 (Version None)
Quarter: 2009Q2

REPORT INFORMATION
  Report Type: 
  Country: None (occurrence: None)
  Receive Date: 20090406
  Receipt Date: 20090402
  Transmission Date: 20091009
  Serious: Yes (Life-Threatening, Hospitalization, Other)
  Sender: FDA-Public Use
  Company Number: PHBS2008CZ05400

PATIENT

DRUGS (4)
  1. TEGRETOL [Suspect]
     Dosage: 32 G, ONCE/SINGLE
     Route: 065
  2. FLUCONAZOLE [Suspect]
     Dosage: 240 MG, ONCE/SINGLE
  3. COXTRAL [Suspect]
     Dosage: 1 G, ONCE/SINGLE
  4. ZYPREXA [Suspect]
     Dosage: 100 MG, ONCE/SINGLE

REACTIONS (14)
  - ASPIRATION [None]
  - BLOOD PRESSURE INCREASED [None]
  - COMA [None]
  - CONVULSION [None]
  - DRUG LEVEL INCREASED [None]
  - ENDOTRACHEAL INTUBATION [None]
  - GASTRIC LAVAGE [None]
  - HAEMODIALYSIS [None]
  - HAEMOPERFUSION [None]
  - INTENTIONAL OVERDOSE [None]
  - MYDRIASIS [None]
  - SOPOR [None]
  - SUICIDE ATTEMPT [None]
  - TACHYCARDIA [None]
